FAERS Safety Report 6259022-0 (Version None)
Quarter: 2009Q3

REPORT INFORMATION
  Report Type: 
  Country: None (occurrence: None)
  Receive Date: 20090707
  Receipt Date: 20090630
  Transmission Date: 20100115
  Serious: Yes (Death, Hospitalization)
  Sender: FDA-Public Use
  Company Number: PHHY2009GB25119

PATIENT
  Age: 56 Year
  Sex: Male

DRUGS (6)
  1. ZOMETA [Suspect]
     Dosage: UNK
  2. FLUID/ELECTROLYTE REPLACEMENT THERAPY [Concomitant]
     Route: 042
  3. ZOLADREX [Concomitant]
     Indication: PROSTATE CANCER
     Dosage: 3.6 MG, QMO
  4. BISOPROLOL FUMARATE [Concomitant]
  5. ASPIRIN [Concomitant]
     Dosage: 75 MG, QD
     Route: 048
  6. CALCICHEW [Concomitant]
     Dosage: 2 DF, QD

REACTIONS (4)
  - GENERAL PHYSICAL HEALTH DETERIORATION [None]
  - HYPOCALCAEMIA [None]
  - PROSTATE CANCER [None]
  - RENAL FAILURE [None]
